FAERS Safety Report 9464369 (Version 1)
Quarter: 2013Q3

REPORT INFORMATION
  Report Type: Spontaneous
  Country: GB (occurrence: GB)
  Receive Date: 20130819
  Receipt Date: 20130819
  Transmission Date: 20140515
  Serious: Yes (Disabling)
  Sender: FDA-Public Use
  Company Number: GB-TEVA-425399ISR

PATIENT
  Age: 23 Year
  Sex: Male
  Weight: 51 kg

DRUGS (9)
  1. ERYTHROMYCIN ETHYLSUCCINATE [Suspect]
     Dates: start: 20130723
  2. EPILIM [Concomitant]
     Dates: start: 20130422
  3. LACOSAMIDE [Concomitant]
     Dates: start: 20130422
  4. RISPERIDONE [Concomitant]
     Dates: start: 20130422
  5. TEGRETOL [Concomitant]
     Dates: start: 20130422
  6. MIDAZOLAM [Concomitant]
     Dates: start: 20130520, end: 20130617
  7. AMOXICILLIN [Concomitant]
     Dates: start: 20130724
  8. NUTRITIONAL SUPPLEMENT [Concomitant]
     Dates: start: 20130422
  9. NUTRITIONAL SUPPLEMENT [Concomitant]
     Dates: start: 20130426

REACTIONS (2)
  - Dysarthria [Recovered/Resolved]
  - Coordination abnormal [Recovered/Resolved]
